FAERS Safety Report 10168727 (Version 1)
Quarter: 2014Q2

REPORT INFORMATION
  Report Type: Spontaneous
  Country: CA (occurrence: CA)
  Receive Date: 20140513
  Receipt Date: 20140513
  Transmission Date: 20141212
  Serious: Yes (Other)
  Sender: FDA-Public Use
  Company Number: CA-AMGEN-CANSP2014033803

PATIENT
  Age: 78 Year
  Sex: Female

DRUGS (6)
  1. PROLIA [Suspect]
     Indication: OSTEOPOROSIS POSTMENOPAUSAL
     Dosage: 60 MG/ML, UNK
     Route: 065
     Dates: start: 20131003
  2. PANTOLOC                           /01263204/ [Concomitant]
  3. ACETIF [Concomitant]
  4. EMPRACET                           /00020001/ [Concomitant]
     Dosage: UNK UNK, AS NECESSARY
  5. ADVAIR [Concomitant]
  6. ROSUVASTATIN [Concomitant]

REACTIONS (3)
  - Oesophageal carcinoma [Not Recovered/Not Resolved]
  - Back pain [Not Recovered/Not Resolved]
  - Pain in extremity [Not Recovered/Not Resolved]
